FAERS Safety Report 6491736-X (Version None)
Quarter: 2009Q4

REPORT INFORMATION
  Report Type: 
  Country: None (occurrence: None)
  Receive Date: 20091208
  Receipt Date: 20091126
  Transmission Date: 20100525
  Serious: Yes (Life-Threatening, Hospitalization)
  Sender: FDA-Public Use
  Company Number: 2009AL004065

PATIENT
  Age: 76 Year
  Sex: Female

DRUGS (7)
  1. CHLORHEXIDINE GLUCONATE [Suspect]
     Dosage: TOP
     Route: 061
     Dates: start: 20090511, end: 20090511
  2. FENTANYL TRANSDERMAL SYSTEM       , 50MCG/HOUR (ASALLC) [Suspect]
     Indication: ANAESTHESIA
     Dosage: 50 UG;IV
     Route: 042
     Dates: start: 20090511, end: 20090511
  3. PROPOFOL [Concomitant]
  4. MIDAZOLAM HCL [Concomitant]
  5. ONDANSETRON [Concomitant]
  6. VECURONIUM BROMIDE [Concomitant]
  7. BETHAHISTINE [Concomitant]

REACTIONS (4)
  - HYPOTENSION [None]
  - SKIN TEST POSITIVE [None]
  - TRYPTASE INCREASED [None]
  - URTICARIA [None]
